FAERS Safety Report 8069894-5 (Version None)
Quarter: 2012Q1

REPORT INFORMATION
  Report Type: 
  Country: None (occurrence: None)
  Receive Date: 20120125
  Receipt Date: 20120113
  Transmission Date: 20120608
  Serious: Yes (Hospitalization)
  Sender: FDA-Public Use
  Company Number: US-ELI_LILLY_AND_COMPANY-US201201004639

PATIENT
  Age: 59 Year
  Sex: Female

DRUGS (13)
  1. RESTORIL [Concomitant]
     Dosage: UNK, QD
  2. FOLIC ACID [Concomitant]
     Dosage: 1 MG, QD
  3. PROTONIX [Concomitant]
     Dosage: 2 DF, QD
  4. FORTEO [Suspect]
     Indication: OSTEOPOROSIS
     Dosage: 20 UG, QD
     Dates: start: 20110301
  5. NORTRIPTYLINE HCL [Concomitant]
     Dosage: 50 MG, QD
  6. ZANAFLEX [Concomitant]
     Indication: MUSCLE RELAXANT THERAPY
     Dosage: 3 DF, PRN
  7. METHOTREXATE [Concomitant]
     Dosage: 8 DF, WEEKLY (1/W)
  8. MULTI-VITAMIN [Concomitant]
     Dosage: UNK
  9. CALCIUM CITRATE [Concomitant]
     Dosage: 1000 MG, BID
  10. PREDNISONE TAB [Concomitant]
     Dosage: 3 DF, EACH MORNING
  11. VITAMIN D [Concomitant]
     Dosage: 1000 MG, BID
  12. HYDROMORPHONE HCL [Concomitant]
     Dosage: 2 MG, PRN
  13. CYMBALTA [Concomitant]
     Dosage: 30 MG, QD

REACTIONS (1)
  - SCOLIOSIS [None]
